FAERS Safety Report 4766955-0 (Version None)
Quarter: 2005Q3

REPORT INFORMATION
  Report Type: 
  Country: None (occurrence: None)
  Receive Date: 20050908
  Receipt Date: 20050831
  Transmission Date: 20060218
  Serious: Yes (Hospitalization)
  Sender: FDA-Public Use
  Company Number: DE-2005-018220

PATIENT
  Age: 38 Year
  Sex: Female

DRUGS (1)
  1. MIRENA [Suspect]
     Indication: CONTRACEPTION
     Dosage: 20 UG/DAY, CONT, INTRA-UTERINE
     Route: 015
     Dates: start: 20050301, end: 20050701

REACTIONS (12)
  - ALOPECIA [None]
  - CONSTIPATION [None]
  - DEPRESSION [None]
  - DIARRHOEA [None]
  - GASTROINTESTINAL INFLAMMATION [None]
  - GENITAL DISCHARGE [None]
  - MENOMETRORRHAGIA [None]
  - MUSCULOSKELETAL PAIN [None]
  - PALPITATIONS [None]
  - RASH [None]
  - TOOTHACHE [None]
  - WEIGHT DECREASED [None]
